FAERS Safety Report 12968488 (Version 1)
Quarter: 2016Q4

REPORT INFORMATION
  Report Type: Spontaneous
  Country: US (occurrence: US)
  Receive Date: 20161123
  Receipt Date: 20161123
  Transmission Date: 20170207
  Serious: No
  Sender: FDA-Public Use
  Company Number: US-APOTEX-2016AP006192

PATIENT
  Age: 64 Year
  Sex: Female

DRUGS (1)
  1. ACYCLOVIR. [Suspect]
     Active Substance: ACYCLOVIR
     Indication: HERPES VIRUS INFECTION
     Dosage: 1 DF, BID
     Route: 065
     Dates: start: 201601

REACTIONS (2)
  - Hypertension [Recovered/Resolved]
  - Palpitations [Recovered/Resolved]
